FAERS Safety Report 7956808-9 (Version None)
Quarter: 2011Q4

REPORT INFORMATION
  Report Type: 
  Country: None (occurrence: None)
  Receive Date: 20111205
  Receipt Date: 20111122
  Transmission Date: 20120403
  Serious: Yes (Other)
  Sender: FDA-Public Use
  Company Number: AU-SANOFI-AVENTIS-2011SA077001

PATIENT
  Sex: Female

DRUGS (3)
  1. RIFADIN [Suspect]
     Indication: OSTEOMYELITIS
     Route: 065
     Dates: start: 20110923, end: 20111001
  2. THYROXIN [Concomitant]
     Route: 065
  3. MOXIFLOXACIN [Suspect]
     Indication: OSTEOMYELITIS
     Route: 065
     Dates: start: 20110923, end: 20111001

REACTIONS (2)
  - HYPERMETROPIA [None]
  - VISION BLURRED [None]
